FAERS Safety Report 9786812 (Version 1)
Quarter: 2013Q4

REPORT INFORMATION
  Report Type: Spontaneous
  Country: RU (occurrence: RU)
  Receive Date: 20131227
  Receipt Date: 20131227
  Transmission Date: 20140711
  Serious: Yes (Death, Other)
  Sender: FDA-Public Use
  Company Number: RU-UCBSA-106863

PATIENT
  Age: 39 Year
  Sex: Female

DRUGS (5)
  1. KEPPRA [Suspect]
     Indication: EPILEPSY
     Route: 048
     Dates: start: 2010
  2. KEPPRA [Suspect]
     Indication: EPILEPSY
     Dosage: DOSE REDUCED
     Route: 048
     Dates: end: 2012
  3. CLONAZEPAM [Concomitant]
     Indication: EPILEPSY
     Dates: start: 2010, end: 2012
  4. VALPROIC ACID [Concomitant]
     Indication: EPILEPSY
     Dates: start: 2010
  5. VALPROIC ACID [Concomitant]
     Indication: EPILEPSY
     Dates: end: 2012

REACTIONS (4)
  - Death [Fatal]
  - Convulsion [Unknown]
  - Overdose [Recovered/Resolved]
  - Pregnancy [Recovered/Resolved]
